FAERS Safety Report 8386344-X (Version None)
Quarter: 2012Q2

REPORT INFORMATION
  Report Type: 
  Country: None (occurrence: None)
  Receive Date: 20120525
  Receipt Date: 20120511
  Transmission Date: 20120825
  Serious: Yes (Hospitalization)
  Sender: FDA-Public Use
  Company Number: US-UCBSA-057259

PATIENT
  Age: 62 Year
  Sex: Female
  Weight: 93 kg

DRUGS (6)
  1. AMBIEN [Concomitant]
     Route: 048
  2. PENTASA [Concomitant]
     Route: 048
  3. STARLIX [Concomitant]
     Route: 048
  4. LOVASA [Concomitant]
     Route: 048
  5. CIMZIA [Suspect]
     Indication: CROHN'S DISEASE
     Route: 058
     Dates: start: 20101001, end: 20120417
  6. HUMALOG [Concomitant]
     Route: 058

REACTIONS (9)
  - GASTROINTESTINAL STOMA COMPLICATION [None]
  - HYPERHIDROSIS [None]
  - BLOOD ELECTROLYTES ABNORMAL [None]
  - DRUG INEFFECTIVE [None]
  - DIZZINESS [None]
  - CROHN'S DISEASE [None]
  - DEHYDRATION [None]
  - PALLOR [None]
  - ASTHENIA [None]
